FAERS Safety Report 7436596-5 (Version None)
Quarter: 2011Q2

REPORT INFORMATION
  Report Type: 
  Country: None (occurrence: None)
  Receive Date: 20110426
  Receipt Date: 20110414
  Transmission Date: 20111010
  Serious: Yes (Hospitalization, Other)
  Sender: FDA-Public Use
  Company Number: US-ELI_LILLY_AND_COMPANY-US201009001938

PATIENT
  Sex: Female

DRUGS (2)
  1. FORTEO [Suspect]
     Indication: OSTEOPOROSIS
     Dosage: 20 UG, DAILY (1/D)
     Dates: start: 20100701
  2. FORTEO [Suspect]
     Dosage: 20 UG, DAILY (1/D)
     Dates: start: 20101101

REACTIONS (11)
  - INJECTION SITE HAEMORRHAGE [None]
  - ILL-DEFINED DISORDER [None]
  - REGURGITATION [None]
  - THROAT TIGHTNESS [None]
  - CEREBROVASCULAR ACCIDENT [None]
  - COUGH [None]
  - CHOKING [None]
  - INJECTION SITE HAEMATOMA [None]
  - THROAT LESION [None]
  - RENAL FAILURE [None]
  - INJECTION SITE PAIN [None]
